FAERS Safety Report 9212820 (Version 1)
Quarter: 2013Q1

REPORT INFORMATION
  Report Type: Spontaneous
  Country: US (occurrence: None)
  Receive Date: 20120822
  Receipt Date: 20120822
  Transmission Date: 20140127
  Serious: No
  Sender: FDA-Public Use
  Company Number: 303947USA

PATIENT
  Sex: Female

DRUGS (1)
  1. ZEBETA [Suspect]
     Dosage: (10 MG ). ORAL
     Route: 048

REACTIONS (2)
  - Swelling face [None]
  - Lip swelling [None]
